FAERS Safety Report 17830110 (Version 4)
Quarter: 2020Q3

REPORT INFORMATION
  Report Type: Spontaneous
  Country: US (occurrence: US)
  Receive Date: 20200527
  Receipt Date: 20200810
  Transmission Date: 20201102
  Serious: Yes (Hospitalization, Other)
  Sender: FDA-Public Use
  Company Number: US-PFIZER INC-2020207317

PATIENT
  Age: 9 Year
  Sex: Female

DRUGS (3)
  1. SIROLIMUS. [Suspect]
     Active Substance: SIROLIMUS
     Indication: IMMUNOSUPPRESSANT DRUG THERAPY
     Dosage: 3 MG, 1X/DAY
  2. TACROLIMUS. [Suspect]
     Active Substance: TACROLIMUS
     Indication: IMMUNOSUPPRESSANT DRUG THERAPY
     Dosage: 3 MG, 2X/DAY (12 HOURS INTERVAL)
  3. TACROLIMUS. [Suspect]
     Active Substance: TACROLIMUS
     Dosage: 1 MG, 2X/DAY

REACTIONS (20)
  - Bacillary angiomatosis [Recovered/Resolved]
  - Hepatomegaly [Recovered/Resolved]
  - Microcytic anaemia [Recovered/Resolved]
  - Off label use [Unknown]
  - Abdominal infection [Recovered/Resolved]
  - Abdominal discomfort [Recovered/Resolved]
  - Hypocalcaemia [Recovered/Resolved]
  - Cat scratch disease [Recovered/Resolved]
  - Pulmonary oedema [Recovered/Resolved]
  - Pleural effusion [Recovered/Resolved]
  - Hypoalbuminaemia [Recovered/Resolved]
  - Thrombocytopenia [Recovered/Resolved]
  - Myelosuppression [Recovered/Resolved]
  - Respiratory distress [Recovered/Resolved]
  - Lymphopenia [Recovered/Resolved]
  - Reticulocyte count decreased [Recovered/Resolved]
  - Product use issue [Unknown]
  - Ascites [Recovered/Resolved]
  - Jarisch-Herxheimer reaction [Recovered/Resolved]
  - Hyperglycaemia [Unknown]
